FAERS Safety Report 21003722 (Version 1)
Quarter: 2022Q2

REPORT INFORMATION
  Report Type: Report from Study
  Country: DE (occurrence: DE)
  Receive Date: 20220624
  Receipt Date: 20220624
  Transmission Date: 20220721
  Serious: Yes (Other)
  Sender: FDA-Public Use
  Company Number: DE-SUN PHARMACEUTICAL INDUSTRIES LTD-2022RR-336862

PATIENT
  Age: 44 Year
  Sex: Female
  Weight: 89 kg

DRUGS (4)
  1. SONIDEGIB [Suspect]
     Active Substance: SONIDEGIB
     Indication: Basal cell carcinoma
     Dosage: 200 MILLIGRAM, DAILY
     Route: 048
     Dates: start: 20210805, end: 20220215
  2. DEVICE [Concomitant]
     Active Substance: DEVICE
     Indication: Basal cell carcinoma
     Dosage: DOSE AS REQUIRED, UNK
     Route: 062
     Dates: start: 20210910
  3. LEVOTHYROXINE SODIUM [Concomitant]
     Active Substance: LEVOTHYROXINE SODIUM
     Indication: Pre-existing disease
     Dosage: 75 MICROGRAM, DAILY
     Route: 048
  4. ZyKlara [Concomitant]
     Indication: Basal cell carcinoma
     Dosage: UNK
     Route: 062
     Dates: start: 20211026

REACTIONS (1)
  - Blood creatinine increased [Not Recovered/Not Resolved]

NARRATIVE: CASE EVENT DATE: 20220215
